FAERS Safety Report 20445735 (Version 1)
Quarter: 2022Q1

REPORT INFORMATION
  Report Type: Spontaneous
  Country: US (occurrence: None)
  Receive Date: 20220208
  Receipt Date: 20220208
  Transmission Date: 20220424
  Serious: Yes (Other)
  Sender: FDA-Public Use
  Company Number: None

PATIENT
  Age: 35 Year
  Sex: Female
  Weight: 56.25 kg

DRUGS (13)
  1. DEXTROAMPHET SACCHARAT, AMPHET ASPARTATE, DEXTROAMPHET SULFATE AND AMP [Suspect]
     Active Substance: AMPHETAMINE ASPARTATE\AMPHETAMINE SULFATE\DEXTROAMPHETAMINE SACCHARATE\DEXTROAMPHETAMINE SULFATE
     Indication: Attention deficit hyperactivity disorder
     Dosage: OTHER QUANTITY : 1 CAPSULE(S);?
     Route: 048
     Dates: start: 20220110, end: 20220207
  2. GABAPENTIN [Concomitant]
     Active Substance: GABAPENTIN
  3. OXYCONTIN [Concomitant]
     Active Substance: OXYCODONE HYDROCHLORIDE
  4. PERCOCET [Concomitant]
     Active Substance: ACETAMINOPHEN\OXYCODONE HYDROCHLORIDE
  5. TIZANIDINE [Concomitant]
     Active Substance: TIZANIDINE
  6. AMBIEN [Concomitant]
     Active Substance: ZOLPIDEM TARTRATE
  7. DULOXETINE [Concomitant]
     Active Substance: DULOXETINE
  8. PANTOPRAZOLE [Concomitant]
     Active Substance: PANTOPRAZOLE
  9. MESALAMINE [Concomitant]
     Active Substance: MESALAMINE
  10. DEPO-PROVERA [Concomitant]
     Active Substance: MEDROXYPROGESTERONE ACETATE
  11. ADDERALL XR [Concomitant]
     Active Substance: AMPHETAMINE ASPARTATE\AMPHETAMINE SULFATE\DEXTROAMPHETAMINE SACCHARATE\DEXTROAMPHETAMINE SULFATE
  12. FISH OIL [Concomitant]
     Active Substance: FISH OIL
  13. VITAMINS [Concomitant]
     Active Substance: VITAMINS

REACTIONS (4)
  - Depression [None]
  - Suicidal behaviour [None]
  - Therapeutic product effect decreased [None]
  - Headache [None]

NARRATIVE: CASE EVENT DATE: 20220207
